FAERS Safety Report 13508275 (Version 1)
Quarter: 2017Q2

REPORT INFORMATION
  Report Type: Spontaneous
  Country: US (occurrence: US)
  Receive Date: 20170503
  Receipt Date: 20170503
  Transmission Date: 20170830
  Serious: Yes (Other)
  Sender: FDA-Public Use
  Company Number: US-009507513-1704USA012215

PATIENT
  Age: 65 Year
  Sex: Female
  Weight: 113.38 kg

DRUGS (6)
  1. LEVOTHYROXINE SODIUM. [Concomitant]
     Active Substance: LEVOTHYROXINE SODIUM
  2. SPIRONOLACTONE. [Concomitant]
     Active Substance: SPIRONOLACTONE
  3. METOPROLOL SUCCINATE. [Concomitant]
     Active Substance: METOPROLOL SUCCINATE
  4. ZEPATIER [Suspect]
     Active Substance: ELBASVIR\GRAZOPREVIR
     Indication: HEPATITIS C
     Dosage: TAKE 1 TABLET(100/50 MG) EVERY DAY
     Route: 048
     Dates: start: 201703
  5. NITROFURANTOIN. [Concomitant]
     Active Substance: NITROFURANTOIN
  6. PROPRANOLOL HYDROCHLORIDE. [Concomitant]
     Active Substance: PROPRANOLOL HYDROCHLORIDE

REACTIONS (8)
  - Drug dose omission [Unknown]
  - Decreased appetite [Unknown]
  - Pain [Recovered/Resolved]
  - Internal haemorrhage [Unknown]
  - Weight decreased [Unknown]
  - Headache [Unknown]
  - Increased tendency to bruise [Unknown]
  - Adverse event [Unknown]

NARRATIVE: CASE EVENT DATE: 2017
